FAERS Safety Report 8256073-1 (Version None)
Quarter: 2012Q2

REPORT INFORMATION
  Report Type: 
  Country: None (occurrence: None)
  Receive Date: 20120403
  Receipt Date: 20120328
  Transmission Date: 20120825
  Serious: Yes (Hospitalization)
  Sender: FDA-Public Use
  Company Number: TR-PFIZER INC-2012079657

PATIENT
  Age: 44 Year
  Sex: Male

DRUGS (1)
  1. SILDENAFIL CITRATE [Suspect]
     Dosage: 150 MG, UNK

REACTIONS (2)
  - INCORRECT DOSE ADMINISTERED [None]
  - ACUTE MYOCARDIAL INFARCTION [None]
